FAERS Safety Report 10519204 (Version 1)
Quarter: 2014Q4

REPORT INFORMATION
  Report Type: Spontaneous
  Country: US (occurrence: US)
  Receive Date: 20141015
  Receipt Date: 20141015
  Transmission Date: 20150528
  Serious: Yes (Other)
  Sender: FDA-Public Use
  Company Number: US-SA-2014SA138071

PATIENT
  Age: 74 Year
  Sex: Female
  Weight: 70.6 kg

DRUGS (2)
  1. TAXOTERE [Suspect]
     Active Substance: DOCETAXEL
     Indication: LUNG NEOPLASM MALIGNANT
     Route: 065
     Dates: start: 20110720, end: 20110803
  2. TAXOTERE [Suspect]
     Active Substance: DOCETAXEL
     Indication: LUNG NEOPLASM MALIGNANT
     Route: 065
     Dates: start: 20110824

REACTIONS (7)
  - Neuropathy peripheral [Unknown]
  - Superior vena cava syndrome [Unknown]
  - Swelling face [Unknown]
  - Vena cava thrombosis [Unknown]
  - Deep vein thrombosis [Unknown]
  - Fatigue [Unknown]
  - Disease progression [Unknown]

NARRATIVE: CASE EVENT DATE: 20110828
